FAERS Safety Report 20348550 (Version 1)
Quarter: 2022Q1

REPORT INFORMATION
  Report Type: Spontaneous
  Country: JP (occurrence: JP)
  Receive Date: 20220119
  Receipt Date: 20220119
  Transmission Date: 20220423
  Serious: Yes (Other)
  Sender: FDA-Public Use
  Company Number: JP-SUN PHARMACEUTICAL INDUSTRIES LTD-2022RR-324203

PATIENT
  Age: 37 Year
  Sex: Male
  Weight: 63.9 kg

DRUGS (3)
  1. BOSENTAN [Suspect]
     Active Substance: BOSENTAN
     Indication: Hypertension
     Dosage: 125 MILLIGRAM, DAILY
     Route: 065
  2. SILDENAFIL [Suspect]
     Active Substance: SILDENAFIL
     Indication: Product used for unknown indication
     Dosage: 60 MILLIGRAM, DAILY
     Route: 065
  3. BERAPROST [Suspect]
     Active Substance: BERAPROST
     Indication: Product used for unknown indication
     Dosage: MAXIMUM 360MICROG/DAY
     Route: 065

REACTIONS (3)
  - Condition aggravated [Unknown]
  - Brain natriuretic peptide increased [Unknown]
  - Drug ineffective [Unknown]
